FAERS Safety Report 9558356 (Version 2)
Quarter: 2013Q3

REPORT INFORMATION
  Report Type: Spontaneous
  Country: NO (occurrence: NO)
  Receive Date: 20130926
  Receipt Date: 20130926
  Transmission Date: 20140515
  Serious: Yes (Other)
  Sender: FDA-Public Use
  Company Number: PHHY2008NO13875

PATIENT
  Sex: Female

DRUGS (2)
  1. OXCARBAZEPINE [Suspect]
     Indication: EPILEPSY
     Route: 048
  2. TOPIMAX [Suspect]
     Indication: EPILEPSY
     Dosage: 200 MG, DAIL

REACTIONS (2)
  - Abortion spontaneous [Unknown]
  - Exposure during pregnancy [Unknown]
